FAERS Safety Report 20468206 (Version 1)
Quarter: 2022Q1

REPORT INFORMATION
  Report Type: Spontaneous
  Country: US (occurrence: None)
  Receive Date: 20220211
  Receipt Date: 20220211
  Transmission Date: 20220424
  Serious: Yes (Hospitalization)
  Sender: FDA-Public Use
  Company Number: None

PATIENT
  Age: 81 Year
  Sex: Female
  Weight: 60.8 kg

DRUGS (14)
  1. CAPECITABINE [Suspect]
     Active Substance: CAPECITABINE
     Indication: Gastric cancer
     Dosage: OTHER FREQUENCY : BID 14 OF 21 DAYS;?
     Route: 048
  2. ACETAMINOPHEN [Concomitant]
     Active Substance: ACETAMINOPHEN
  3. NORVASC [Concomitant]
     Active Substance: AMLODIPINE BESYLATE
  4. RESTASIS [Concomitant]
     Active Substance: CYCLOSPORINE
  5. FLONASE [Concomitant]
     Active Substance: FLUTICASONE PROPIONATE
  6. GABAPENTIN [Concomitant]
     Active Substance: GABAPENTIN
  7. INDAPAMIDE [Concomitant]
     Active Substance: INDAPAMIDE
  8. SYNTHROID [Concomitant]
     Active Substance: LEVOTHYROXINE SODIUM
  9. METOPROLOL [Concomitant]
     Active Substance: METOPROLOL
  10. NASONEX [Concomitant]
     Active Substance: MOMETASONE FUROATE
  11. ZOFRAN [Concomitant]
     Active Substance: ONDANSETRON HYDROCHLORIDE
  12. SYSTANE (HYPROMELLOSE 2910 (4000 MPA.S)) [Concomitant]
     Active Substance: HYPROMELLOSE 2910 (4000 MPA.S)
  13. SIMETHICONE (DIMETHICONE) [Concomitant]
     Active Substance: DIMETHICONE
  14. SIMVASTATIN [Concomitant]
     Active Substance: SIMVASTATIN

REACTIONS (4)
  - Small intestinal obstruction [None]
  - Abdominal adhesions [None]
  - Anaemia [None]
  - Haemoperitoneum [None]

NARRATIVE: CASE EVENT DATE: 20220107
